FAERS Safety Report 9814754 (Version 1)
Quarter: 2014Q1

REPORT INFORMATION
  Report Type: Spontaneous
  Country: US (occurrence: US)
  Receive Date: 20140113
  Receipt Date: 20140113
  Transmission Date: 20141002
  Serious: Yes (Hospitalization)
  Sender: FDA-Public Use
  Company Number: US-SANOFI-AVENTIS-2013SA074281

PATIENT
  Age: 79 Year
  Sex: Male
  Weight: 92.7 kg

DRUGS (6)
  1. TAXOTERE [Suspect]
     Indication: PRODUCT USED FOR UNKNOWN INDICATION
     Route: 065
     Dates: start: 20130621, end: 20130621
  2. ENOXAPARIN [Suspect]
     Indication: DEEP VEIN THROMBOSIS
     Route: 065
     Dates: end: 20130625
  3. ENOXAPARIN [Suspect]
     Indication: PULMONARY EMBOLISM
     Route: 065
     Dates: end: 20130625
  4. ENOXAPARIN [Suspect]
     Indication: DEEP VEIN THROMBOSIS
     Route: 065
  5. ENOXAPARIN [Suspect]
     Indication: PULMONARY EMBOLISM
     Route: 065
  6. OXYCODONE [Concomitant]
     Indication: PAIN
     Route: 048

REACTIONS (3)
  - Melaena [Recovered/Resolved]
  - Abdominal pain [Recovered/Resolved]
  - Neutropenia [Recovered/Resolved]
